FAERS Safety Report 7823611-X (Version None)
Quarter: 2011Q4

REPORT INFORMATION
  Report Type: 
  Country: None (occurrence: None)
  Receive Date: 20111019
  Receipt Date: 20111013
  Transmission Date: 20120403
  Serious: Yes (Other)
  Sender: FDA-Public Use
  Company Number: US-PFIZER INC-2010025134

PATIENT
  Sex: Female
  Weight: 92.063 kg

DRUGS (28)
  1. LYRICA [Suspect]
     Dosage: 50 MG, 2X/DAY
     Route: 048
  2. HUMULIN R [Suspect]
     Dosage: UNK
  3. AVANDIA [Suspect]
     Dosage: UNK
     Route: 048
  4. LISINOPRIL [Concomitant]
     Indication: HYPERTENSION
     Dosage: 20 MG, DAILY
  5. CYCLOBENZAPRINE HYDROCHLORIDE [Concomitant]
     Indication: STRESS
  6. LYRICA [Suspect]
     Indication: DIABETIC NEUROPATHY
     Dosage: 50 MG, 2X/DAY
     Route: 048
     Dates: start: 20090901, end: 20100214
  7. EFFEXOR XR [Suspect]
     Dosage: 150 MG, 2X/DAY
     Route: 048
  8. GLUCOPHAGE [Suspect]
     Dosage: UNK
     Route: 048
  9. CYCLOBENZAPRINE [Concomitant]
     Dosage: UNK
  10. GLIPIZIDE [Concomitant]
     Dosage: UNK
  11. TEMAZEPAM [Concomitant]
     Dosage: UNK
  12. JANUVIA [Concomitant]
     Dosage: UNK
  13. EFFEXOR XR [Suspect]
     Indication: MAJOR DEPRESSION
     Dosage: 75 MG, 2X/DAY
     Route: 048
     Dates: start: 20010101
  14. XANAX [Suspect]
     Dosage: UNK
     Route: 048
  15. ADDERALL 5 [Suspect]
     Indication: ANXIETY
     Dosage: 15MG TO 30 MG
  16. ADDERALL 5 [Suspect]
     Dosage: UNK
  17. AMBIEN [Suspect]
     Indication: SLEEP DISORDER
     Dosage: 10 MG, AS NEEDED
     Route: 048
  18. BYETTA [Suspect]
     Dosage: UNK
  19. VALTREX [Suspect]
     Dosage: UNK
  20. METHYLFOLATE [Concomitant]
     Dosage: UNK
  21. EFFEXOR XR [Suspect]
     Indication: ANXIETY
     Dosage: 150 MG DAILY
     Route: 048
  22. EFFEXOR XR [Suspect]
     Dosage: UNK
     Route: 048
  23. XANAX [Suspect]
     Indication: ANXIETY
     Dosage: 1 MG DAILY
     Route: 048
  24. ALPRAZOLAM [Concomitant]
     Dosage: UNK
  25. AMBIEN [Suspect]
     Dosage: UNK
     Route: 048
  26. AVALIDE [Suspect]
     Dosage: UNK
  27. ACTOS [Concomitant]
     Dosage: UNK
  28. CYCLOBENZAPRINE HYDROCHLORIDE [Concomitant]
     Indication: MUSCLE SPASMS
     Dosage: 10 MG, AS NEEDED
     Route: 048

REACTIONS (9)
  - SKELETAL INJURY [None]
  - HYPOAESTHESIA [None]
  - HYPERSENSITIVITY [None]
  - WEIGHT ABNORMAL [None]
  - MUSCULAR WEAKNESS [None]
  - CONSTIPATION [None]
  - FALL [None]
  - MUSCLE SPASMS [None]
  - TENSION [None]
